FAERS Safety Report 19778343 (Version 1)
Quarter: 2021Q3

REPORT INFORMATION
  Report Type: Spontaneous
  Country: US (occurrence: US)
  Receive Date: 20210902
  Receipt Date: 20210902
  Transmission Date: 20211014
  Serious: Yes (Other)
  Sender: FDA-Public Use
  Company Number: US-TEVA-2021-US-1946467

PATIENT
  Age: 49 Year
  Sex: Male

DRUGS (1)
  1. COPAXONE [Suspect]
     Active Substance: GLATIRAMER ACETATE
     Route: 065

REACTIONS (7)
  - Dysgeusia [Unknown]
  - Dyspnoea [Unknown]
  - Injection site swelling [Unknown]
  - Heart rate increased [Unknown]
  - Chills [Unknown]
  - Chest discomfort [Unknown]
  - Seizure [Unknown]
